FAERS Safety Report 7773826-4 (Version None)
Quarter: 2011Q3

REPORT INFORMATION
  Report Type: 
  Country: None (occurrence: None)
  Receive Date: 20110923
  Receipt Date: 20110913
  Transmission Date: 20111222
  Serious: Yes (Other)
  Sender: FDA-Public Use
  Company Number: US-JNJFOC-20110603834

PATIENT
  Sex: Female
  Weight: 83.92 kg

DRUGS (9)
  1. REMICADE [Suspect]
     Route: 042
     Dates: end: 20110525
  2. BACLOFEN [Concomitant]
     Indication: MUSCLE SPASMS
     Route: 048
  3. RESTORIL [Concomitant]
     Indication: INSOMNIA
     Route: 048
  4. REMICADE [Suspect]
     Indication: RHEUMATOID ARTHRITIS
     Dosage: ONCE MONTHLY
     Route: 042
  5. CYMBALTA [Concomitant]
     Indication: DEPRESSION
     Route: 048
  6. MOBIC [Concomitant]
     Indication: INFLAMMATION
     Route: 048
  7. AVINZA [Concomitant]
     Indication: PAIN
     Route: 048
  8. NEXIUM [Concomitant]
     Indication: DYSPEPSIA
     Route: 048
  9. LEVOTHYROXINE SODIUM [Concomitant]
     Indication: HYPOTHYROIDISM
     Dosage: 50MCG/TABLET/50MCG/EVERY DAY
     Route: 048

REACTIONS (2)
  - ERYTHEMA [None]
  - OSTEOARTHRITIS [None]
